FAERS Safety Report 8093956-X (Version None)
Quarter: 2012Q1

REPORT INFORMATION
  Report Type: 
  Country: None (occurrence: None)
  Receive Date: 20120130
  Receipt Date: 20120124
  Transmission Date: 20120608
  Serious: Yes (Other)
  Sender: FDA-Public Use
  Company Number: US-BRACCO-007025

PATIENT
  Age: 34 Year
  Sex: Female

DRUGS (4)
  1. IOPAMIDOL [Suspect]
     Indication: ABDOMINAL MASS
     Route: 042
     Dates: start: 20111020, end: 20111020
  2. METOPROLOL SUCCINATE [Concomitant]
     Indication: HYPERTENSION
     Dates: start: 20110902, end: 20110919
  3. FELODIPINE [Concomitant]
     Indication: HYPERTENSION
     Dates: start: 20110919, end: 20111020
  4. IOPAMIDOL [Suspect]
     Indication: COMPUTERISED TOMOGRAM
     Route: 042
     Dates: start: 20111020, end: 20111020

REACTIONS (2)
  - PRE-ECLAMPSIA [None]
  - MATERNAL EXPOSURE DURING PREGNANCY [None]
